FAERS Safety Report 8491915-6 (Version None)
Quarter: 2012Q3

REPORT INFORMATION
  Report Type: 
  Country: None (occurrence: None)
  Receive Date: 20120706
  Receipt Date: 20120130
  Transmission Date: 20120928
  Serious: No
  Sender: FDA-Public Use
  Company Number: US-GLAXOSMITHKLINE-A0963750A

PATIENT
  Age: 17 Year
  Sex: Male

DRUGS (3)
  1. FLOVENT [Suspect]
     Indication: ASTHMA EXERCISE INDUCED
     Dosage: 2PUFF TWICE PER DAY
     Route: 055
     Dates: start: 20111201
  2. RISPERDAL [Concomitant]
  3. ZOLOFT [Concomitant]

REACTIONS (2)
  - SWELLING FACE [None]
  - FACE OEDEMA [None]
